FAERS Safety Report 15238503 (Version 1)
Quarter: 2018Q3

REPORT INFORMATION
  Report Type: Spontaneous
  Country: US (occurrence: US)
  Receive Date: 20180710
  Receipt Date: 20180710
  Transmission Date: 20181010
  Serious: No
  Sender: FDA-Public Use
  Company Number: None

PATIENT
  Age: 35 Year
  Sex: Female

DRUGS (1)
  1. AMPYRA [Suspect]
     Active Substance: DALFAMPRIDINE
     Indication: MULTIPLE SCLEROSIS
     Route: 048
     Dates: start: 20180611

REACTIONS (4)
  - Laboratory test abnormal [None]
  - Hypochromasia [None]
  - White blood cell count increased [None]
  - Neutrophil count increased [None]

NARRATIVE: CASE EVENT DATE: 20180706
